FAERS Safety Report 9090231 (Version 1)
Quarter: 2013Q1

REPORT INFORMATION
  Report Type: Report from Study
  Country: US (occurrence: US)
  Receive Date: 20130131
  Receipt Date: 20130131
  Transmission Date: 20140127
  Serious: No
  Sender: FDA-Public Use
  Company Number: US-ABBOTT-12P-163-1022458-00

PATIENT
  Sex: Female
  Weight: 90.8 kg

DRUGS (5)
  1. HUMIRA [Suspect]
     Indication: PSORIASIS
     Dates: start: 201210
  2. ATENOLOL [Concomitant]
     Indication: ELECTROCARDIOGRAM QT PROLONGED
  3. VITAMIN C [Concomitant]
     Indication: SUPPLEMENTATION THERAPY
  4. OSTEO-BIFLEX [Concomitant]
     Indication: SUPPLEMENTATION THERAPY
  5. MULTIVITAMIN [Concomitant]
     Indication: SUPPLEMENTATION THERAPY

REACTIONS (3)
  - Injection site bruising [Recovered/Resolved]
  - Injection site swelling [Recovered/Resolved]
  - Injection site pruritus [Recovered/Resolved]
